FAERS Safety Report 24392344 (Version 1)
Quarter: 2024Q4

REPORT INFORMATION
  Report Type: Spontaneous
  Country: US (occurrence: US)
  Receive Date: 20241003
  Receipt Date: 20241003
  Transmission Date: 20250115
  Serious: No
  Sender: PFIZER
  Company Number: US-PFIZER INC-PV202400127011

PATIENT
  Age: 51 Year
  Sex: Female

DRUGS (1)
  1. ZAVZPRET [Suspect]
     Active Substance: ZAVEGEPANT HYDROCHLORIDE
     Dosage: INSTILL 1 SPRAY IN 1 NOSTRIL ONCE AS NEEDED AT ONSET OF MIGRAINE. MAX 1 DOSE IN 24 HRS

REACTIONS (2)
  - Drug ineffective [Unknown]
  - Nasal disorder [Unknown]
